FAERS Safety Report 13639265 (Version 1)
Quarter: 2017Q2

REPORT INFORMATION
  Report Type: Spontaneous
  Country: US (occurrence: US)
  Receive Date: 20170609
  Receipt Date: 20170609
  Transmission Date: 20170830
  Serious: Yes (Other)
  Sender: FDA-Public Use
  Company Number: US-ROCHE-774777

PATIENT
  Age: 64 Year
  Sex: Female

DRUGS (4)
  1. KLONOPIN [Suspect]
     Active Substance: CLONAZEPAM
     Indication: ANXIETY
     Dosage: INDICATION: NERVES.
     Route: 048
     Dates: start: 2009, end: 20110421
  2. KLONOPIN [Suspect]
     Active Substance: CLONAZEPAM
     Dosage: TOOK EXTRA 0.5 MG EVERY 2-3 DAYS. DOSE: 1-3.5 MG/DAY
     Route: 048
  3. DEPAKOTE [Concomitant]
     Active Substance: DIVALPROEX SODIUM
     Route: 065
  4. THIORIDAZINE [Concomitant]
     Active Substance: THIORIDAZINE
     Route: 065

REACTIONS (1)
  - Withdrawal syndrome [Unknown]

NARRATIVE: CASE EVENT DATE: 20110421
